FAERS Safety Report 12553054 (Version 1)
Quarter: 2016Q3

REPORT INFORMATION
  Report Type: Spontaneous
  Country: IN (occurrence: IN)
  Receive Date: 20160713
  Receipt Date: 20160713
  Transmission Date: 20161109
  Serious: Yes (Other)
  Sender: FDA-Public Use
  Company Number: IN-PFIZER INC-2013183783

PATIENT
  Age: 2 Year
  Sex: Male
  Weight: 28 kg

DRUGS (9)
  1. LOPINAVIR W/RITONAVIR [Suspect]
     Active Substance: LOPINAVIR\RITONAVIR
     Indication: HIV INFECTION
     Dosage: 300 MG, 2X/DAY
     Route: 065
     Dates: start: 201010
  2. EMTRICITABINE [Suspect]
     Active Substance: EMTRICITABINE
     Indication: HIV INFECTION
     Dosage: 150 MG, UNK
     Route: 065
     Dates: start: 201010
  3. NEVIRAPINE. [Suspect]
     Active Substance: NEVIRAPINE
     Indication: HIV INFECTION
     Dosage: 150 MG IN IN TWO DIVIDED DOSES
     Route: 065
     Dates: start: 2001
  4. STAVUDINE. [Suspect]
     Active Substance: STAVUDINE
     Indication: HIV INFECTION
     Dosage: 30 MG IN TWO DIVIDED DOSES
     Route: 065
     Dates: start: 200309
  5. ZIDOVUDINE. [Suspect]
     Active Substance: ZIDOVUDINE
     Indication: HIV INFECTION
     Dosage: 180 MG IN 2 DIVIDED DOSES
     Route: 065
     Dates: start: 200106
  6. LAMIVUDINE. [Suspect]
     Active Substance: LAMIVUDINE
     Indication: HIV INFECTION
     Dosage: 80 MG IN TWO DIVIDED DOSES
     Route: 065
     Dates: start: 200106
  7. NELFINAVIR MESILATE [Suspect]
     Active Substance: NELFINAVIR MESYLATE
     Indication: HIV INFECTION
     Dosage: 1250 MG IN 3 DIVIDED DOSES
     Route: 065
     Dates: start: 200309
  8. DIDANOSINE. [Suspect]
     Active Substance: DIDANOSINE
     Indication: HIV INFECTION
     Dosage: 125 MG, 1X/DAY
     Route: 065
     Dates: start: 200309
  9. TENOFOVIR [Suspect]
     Active Substance: TENOFOVIR
     Indication: HIV INFECTION
     Dosage: 225 MG, 1X/DAY
     Route: 065
     Dates: start: 201010

REACTIONS (2)
  - Drug resistance [Unknown]
  - Treatment failure [Unknown]
